FAERS Safety Report 11025521 (Version 1)
Quarter: 2015Q2

REPORT INFORMATION
  Report Type: Spontaneous
  Country: US (occurrence: US)
  Receive Date: 20150414
  Receipt Date: 20150414
  Transmission Date: 20150821
  Serious: No
  Sender: FDA-Public Use
  Company Number: US-PFIZER INC-2015122321

PATIENT
  Age: 57 Year
  Sex: Female
  Weight: 50 kg

DRUGS (1)
  1. ESTRING [Suspect]
     Active Substance: ESTRADIOL
     Indication: VULVOVAGINAL DRYNESS
     Dosage: UNKNOWN; PROBABLY A LOW DOSAGE INSERTED, EVERY 3 MONTHS
     Dates: start: 2013, end: 201411

REACTIONS (1)
  - Dry skin [Not Recovered/Not Resolved]

NARRATIVE: CASE EVENT DATE: 201412
